FAERS Safety Report 5352324-1 (Version None)
Quarter: 2007Q2

REPORT INFORMATION
  Report Type: 
  Country: None (occurrence: None)
  Receive Date: 20070607
  Receipt Date: 20070607
  Transmission Date: 20071010
  Serious: Yes (Hospitalization)
  Sender: FDA-Public Use
  Company Number: None

PATIENT
  Age: 51 Year
  Sex: Female
  Weight: 81.6475 kg

DRUGS (6)
  1. ACTOS [Suspect]
     Indication: DIABETES MELLITUS
  2. LUNESTA [Concomitant]
  3. GLYBURIDE/METOFORMIN [Concomitant]
  4. SIMVASTATIN [Concomitant]
  5. ATENOLOL [Concomitant]
  6. FUROSEMIDE [Concomitant]

REACTIONS (2)
  - CARDIAC FAILURE [None]
  - CHEST PAIN [None]
